FAERS Safety Report 5754577-4 (Version None)
Quarter: 2008Q2

REPORT INFORMATION
  Report Type: 
  Country: None (occurrence: None)
  Receive Date: 20080530
  Receipt Date: 20080519
  Transmission Date: 20081010
  Serious: Yes (Other)
  Sender: FDA-Public Use
  Company Number: US-PFIZER INC-2008043202

PATIENT
  Sex: Female
  Weight: 113.4 kg

DRUGS (1)
  1. CHANTIX [Suspect]
     Indication: SMOKING CESSATION THERAPY
     Dates: start: 20080508, end: 20080514

REACTIONS (4)
  - AGITATION [None]
  - HOMICIDAL IDEATION [None]
  - NERVOUSNESS [None]
  - STRESS [None]
